FAERS Safety Report 5710868-4 (Version None)
Quarter: 2008Q2

REPORT INFORMATION
  Report Type: 
  Country: None (occurrence: None)
  Receive Date: 20080417
  Receipt Date: 20080417
  Transmission Date: 20081010
  Serious: No
  Sender: FDA-Public Use
  Company Number: None

PATIENT
  Age: 37 Year
  Sex: Female
  Weight: 47.6277 kg

DRUGS (1)
  1. LYRICA [Suspect]
     Indication: NERVOUS SYSTEM DISORDER
     Dosage: 600MG PER DAY  3XS DAILY PO
     Route: 048
     Dates: start: 20070502

REACTIONS (8)
  - ARTHRALGIA [None]
  - ASTHENIA [None]
  - CHILLS [None]
  - DRUG DEPENDENCE [None]
  - FATIGUE [None]
  - HYPERHIDROSIS [None]
  - MYALGIA [None]
  - ORAL INTAKE REDUCED [None]
